FAERS Safety Report 8432536-0 (Version None)
Quarter: 2012Q2

REPORT INFORMATION
  Report Type: 
  Country: None (occurrence: None)
  Receive Date: 20120613
  Receipt Date: 20120604
  Transmission Date: 20120825
  Serious: Yes (Other)
  Sender: FDA-Public Use
  Company Number: CA-JNJFOC-20120602021

PATIENT
  Sex: Female
  Weight: 86 kg

DRUGS (7)
  1. FOLIC ACID [Concomitant]
     Route: 065
  2. CELEBREX [Concomitant]
     Route: 065
  3. VENTOLIN [Concomitant]
     Route: 065
  4. FLOVENT [Concomitant]
     Route: 065
  5. REMICADE [Suspect]
     Indication: RHEUMATOID ARTHRITIS
     Route: 042
     Dates: start: 19980101
  6. METHOTREXATE [Concomitant]
     Route: 065
  7. VITAMINS NOS [Concomitant]
     Route: 065

REACTIONS (2)
  - ASTHMA [None]
  - WEIGHT DECREASED [None]
